FAERS Safety Report 8312891-2 (Version None)
Quarter: 2012Q2

REPORT INFORMATION
  Report Type: 
  Country: None (occurrence: None)
  Receive Date: 20120426
  Receipt Date: 20120418
  Transmission Date: 20120825
  Serious: Yes (Hospitalization)
  Sender: FDA-Public Use
  Company Number: US-BAYER-2011-075521

PATIENT
  Age: 23 Year
  Sex: Female
  Weight: 86.168 kg

DRUGS (12)
  1. TIZANIDINE HCL [Concomitant]
     Dosage: UNK
     Dates: start: 20040101
  2. DROSPIRENONE AND ETHINYL ESTRADIOL [Suspect]
     Dosage: UNK
     Dates: start: 20080801, end: 20081101
  3. ZANAFLEX [Concomitant]
  4. MEXILETINE HYDROCHLORIDE [Concomitant]
     Dosage: 250 MG, UNK
     Dates: start: 20080506, end: 20090927
  5. METOCLOPRAMIDE [Concomitant]
     Dosage: UNK
     Dates: start: 20030303, end: 20081012
  6. NEXIUM [Concomitant]
     Dosage: 40 MG, UNK
     Dates: start: 20080511, end: 20081012
  7. PERCOCET [Concomitant]
  8. ONDANSETRON [Concomitant]
     Dosage: 4 MG, UNK
     Dates: start: 20080319, end: 20100820
  9. YASMIN [Suspect]
     Dosage: UNK
     Dates: start: 20031001, end: 20090801
  10. OXYCODONE HCL AND ACETAMINOPHEN [Concomitant]
     Dosage: UNK
     Dates: start: 20030917, end: 20100820
  11. CLINDAMYCIN [Concomitant]
     Dosage: 300 MG, UNK
     Dates: start: 20081111
  12. ISOMETHEPTENE/DICHLORALPHENAZONE/APAP [Concomitant]
     Dosage: UNK
     Dates: start: 20080613, end: 20081012

REACTIONS (2)
  - INJURY [None]
  - PULMONARY EMBOLISM [None]
